FAERS Safety Report 23055979 (Version 1)
Quarter: 2023Q4

REPORT INFORMATION
  Report Type: Spontaneous
  Country: US (occurrence: US)
  Receive Date: 20231011
  Receipt Date: 20231011
  Transmission Date: 20240109
  Serious: Yes (Other)
  Sender: FDA-Public Use
  Company Number: US-009507513-2310USA002814

PATIENT
  Sex: Male

DRUGS (1)
  1. KEYTRUDA [Suspect]
     Active Substance: PEMBROLIZUMAB
     Indication: Renal cancer
     Dosage: UNK

REACTIONS (9)
  - Intervertebral disc operation [Unknown]
  - Fatigue [Unknown]
  - Somnolence [Unknown]
  - Insomnia [Unknown]
  - Pain [Unknown]
  - Pain in extremity [Unknown]
  - Gait disturbance [Unknown]
  - Injury [Unknown]
  - Intervertebral disc degeneration [Unknown]

NARRATIVE: CASE EVENT DATE: 20230101
